FAERS Safety Report 19605959 (Version 4)
Quarter: 2021Q4

REPORT INFORMATION
  Report Type: Report from Study
  Country: US (occurrence: US)
  Receive Date: 20210723
  Receipt Date: 20211007
  Transmission Date: 20220303
  Serious: Yes (Other)
  Sender: FDA-Public Use
  Company Number: US-BAYER-2021-176492

PATIENT

DRUGS (1)
  1. EYLEA [Suspect]
     Active Substance: AFLIBERCEPT
     Indication: Neovascular age-related macular degeneration
     Dosage: OS, TOTAL OF 4 EYLEA DOSES ,LAST DOSE PRIOR THE EVENT WAS RECEIVED ON 17-DEC-2019
     Route: 031
     Dates: start: 20190507, end: 20191217

REACTIONS (2)
  - Blindness [Unknown]
  - Bacterial endophthalmitis [Recovered/Resolved]

NARRATIVE: CASE EVENT DATE: 20191219
